FAERS Safety Report 24428739 (Version 1)
Quarter: 2024Q4

REPORT INFORMATION
  Report Type: Spontaneous
  Country: RU (occurrence: RU)
  Receive Date: 20241011
  Receipt Date: 20241011
  Transmission Date: 20250115
  Serious: Yes (Other)
  Sender: pharmaAND
  Company Number: RU-ROCHE-10000093439

PATIENT
  Age: 22 Year
  Sex: Male

DRUGS (3)
  1. PEGASYS [Suspect]
     Active Substance: PEGINTERFERON ALFA-2A
     Indication: Chronic hepatitis C
     Route: 065
     Dates: start: 200712, end: 200809
  2. RIBAVIRIN [Suspect]
     Active Substance: RIBAVIRIN
     Indication: Chronic hepatitis C
     Route: 065
     Dates: start: 200712, end: 200809
  3. PEGINTERFERON ALFA-2B [Concomitant]
     Active Substance: PEGINTERFERON ALFA-2B
     Indication: Chronic hepatitis C
     Dates: start: 200508

REACTIONS (3)
  - Glomerulonephritis acute [Unknown]
  - Urinary tract disorder [Unknown]
  - Tonsillitis [Unknown]
